FAERS Safety Report 14329803 (Version 11)
Quarter: 2019Q3

REPORT INFORMATION
  Report Type: Spontaneous
  Country: JP (occurrence: JP)
  Receive Date: 20171227
  Receipt Date: 20190718
  Transmission Date: 20191004
  Serious: Yes (Hospitalization, Other)
  Sender: FDA-Public Use
  Company Number: JP-UNITED THERAPEUTICS-UNT-2017-003266

PATIENT
  Age: 34 Year
  Sex: Female
  Weight: 57 kg

DRUGS (31)
  1. SAMSCA [Concomitant]
     Active Substance: TOLVAPTAN
     Indication: PROPHYLAXIS
     Dosage: UNK
     Route: 048
     Dates: start: 20170303
  2. SLOW-K [Concomitant]
     Active Substance: POTASSIUM CHLORIDE
     Indication: PROPHYLAXIS
     Dosage: UNK
     Route: 048
  3. GENTACIN [Concomitant]
     Active Substance: GENTAMICIN SULFATE
     Indication: PROPHYLAXIS
     Dosage: UNK
     Route: 062
     Dates: start: 20160313, end: 20160706
  4. REMODULIN [Suspect]
     Active Substance: TREPROSTINIL
     Dosage: 0.042 ?G/KG, CONTINUING
     Route: 041
  5. PROCYLIN [Concomitant]
     Active Substance: BERAPROST SODIUM
     Indication: PULMONARY ARTERIAL HYPERTENSION
     Dosage: UNK
     Route: 048
     Dates: start: 201507
  6. LUPRAC [Concomitant]
     Active Substance: TORSEMIDE
     Indication: PULMONARY ARTERIAL HYPERTENSION
     Dosage: UNK
     Route: 048
     Dates: start: 20170207
  7. MUCOSTA [Concomitant]
     Active Substance: REBAMIPIDE
     Indication: GASTRITIS PROPHYLAXIS
     Dosage: UNK
     Route: 048
     Dates: start: 201507
  8. IRRIBOW [Concomitant]
     Active Substance: RAMOSETRON HYDROCHLORIDE
     Indication: DIARRHOEA
  9. PREDNISOLONE. [Concomitant]
     Active Substance: PREDNISOLONE
     Dosage: UNK
     Route: 048
  10. LASIX [Concomitant]
     Active Substance: FUROSEMIDE
     Dosage: UNK
     Route: 048
     Dates: start: 20170228
  11. PRIMPERAN [Concomitant]
     Active Substance: METOCLOPRAMIDE HYDROCHLORIDE
     Indication: PROPHYLAXIS
     Dosage: UNK
     Route: 048
     Dates: end: 20180417
  12. THYRADIN S [Concomitant]
     Active Substance: LEVOTHYROXINE SODIUM
     Indication: PROPHYLAXIS
     Dosage: 25 ?G, QD
     Route: 048
     Dates: start: 20170713
  13. CORTRIL [Concomitant]
     Active Substance: HYDROCORTISONE
     Indication: ADRENAL INSUFFICIENCY
     Dosage: UNK
     Route: 048
  14. ADCIRCA [Concomitant]
     Active Substance: TADALAFIL
     Indication: PULMONARY ARTERIAL HYPERTENSION
     Dosage: 20 MG, BID
     Route: 048
     Dates: start: 20160302
  15. ADCIRCA [Concomitant]
     Active Substance: TADALAFIL
     Dosage: UNK
     Route: 048
     Dates: start: 20150823, end: 20160228
  16. PHELLOBERIN [Concomitant]
     Active Substance: BERBERINE\GERANIUM
     Indication: PROPHYLAXIS
     Dosage: UNK
     Route: 048
     Dates: start: 20160628, end: 20161019
  17. UPTRAVI [Concomitant]
     Active Substance: SELEXIPAG
     Indication: PULMONARY ARTERIAL HYPERTENSION
     Dosage: 1.6 MG, BID
     Route: 048
     Dates: start: 20170322
  18. FERROMIA [Concomitant]
     Active Substance: SODIUM FERROUS CITRATE
     Indication: ANAEMIA
     Dosage: UNK
     Route: 048
     Dates: start: 201507
  19. LASIX [Concomitant]
     Active Substance: FUROSEMIDE
     Indication: PULMONARY ARTERIAL HYPERTENSION
     Dosage: UNK
     Route: 048
     Dates: start: 20160920
  20. TAKECAB [Concomitant]
     Active Substance: VONOPRAZAN FUMURATE
     Indication: PROPHYLAXIS
     Dosage: UNK
     Route: 048
  21. ALLELOCK [Concomitant]
     Active Substance: OLOPATADINE HYDROCHLORIDE
     Indication: PROPHYLAXIS
     Dosage: UNK
     Route: 048
  22. LOXONIN [Concomitant]
     Active Substance: LOXOPROFEN SODIUM
     Indication: ADRENAL INSUFFICIENCY
     Dosage: UNK
     Route: 062
     Dates: start: 20180814
  23. LYRICA [Concomitant]
     Active Substance: PREGABALIN
     Indication: PROPHYLAXIS
     Dosage: UNK
     Route: 048
     Dates: start: 20181120
  24. REVATIO [Concomitant]
     Active Substance: SILDENAFIL CITRATE
     Indication: PULMONARY ARTERIAL HYPERTENSION
     Dosage: 20 MG, TID
     Route: 048
     Dates: start: 20160302
  25. OPSUMIT [Concomitant]
     Active Substance: MACITENTAN
     Indication: PULMONARY ARTERIAL HYPERTENSION
     Dosage: 10 MG, QD
     Route: 048
     Dates: start: 20160225
  26. LUPRAC [Concomitant]
     Active Substance: TORSEMIDE
     Indication: CARDIAC FAILURE CHRONIC
     Dosage: UNK
     Route: 048
     Dates: start: 201507
  27. IRRIBOW [Concomitant]
     Active Substance: RAMOSETRON HYDROCHLORIDE
     Indication: IRRITABLE BOWEL SYNDROME
     Dosage: UNK
     Route: 048
     Dates: start: 2015
  28. PREDNISOLONE. [Concomitant]
     Active Substance: PREDNISOLONE
     Indication: PRODUCT USED FOR UNKNOWN INDICATION
     Dosage: 5 MG, UNK
     Route: 048
  29. REMODULIN [Suspect]
     Active Substance: TREPROSTINIL
     Indication: PULMONARY ARTERIAL HYPERTENSION
     Dosage: 0.070 ?G/KG, CONTINUING
     Route: 041
     Dates: start: 20170218, end: 20171019
  30. REMODULIN [Suspect]
     Active Substance: TREPROSTINIL
     Dosage: 0.061 ?G/KG, CONTINUING
     Route: 041
  31. REVATIO [Concomitant]
     Active Substance: SILDENAFIL CITRATE
     Dosage: UNK
     Route: 048
     Dates: start: 201504, end: 20160208

REACTIONS (16)
  - Decreased appetite [Unknown]
  - Injection site dermatitis [Recovering/Resolving]
  - Injection site urticaria [Recovering/Resolving]
  - Skin disorder [Recovering/Resolving]
  - Device related infection [Recovering/Resolving]
  - Lymphadenopathy [Recovered/Resolved]
  - Pyrexia [Recovered/Resolved]
  - Pain [Unknown]
  - Adrenocorticotropic hormone deficiency [Unknown]
  - Right ventricular failure [Recovering/Resolving]
  - Vomiting [Recovered/Resolved]
  - Haemoglobin decreased [Recovering/Resolving]
  - Eosinophilia [Unknown]
  - Hyponatraemia [Unknown]
  - Adrenal insufficiency [Recovering/Resolving]
  - Back pain [Recovering/Resolving]

NARRATIVE: CASE EVENT DATE: 2017
